FAERS Safety Report 19257072 (Version 1)
Quarter: 2021Q2

REPORT INFORMATION
  Report Type: Spontaneous
  Country: US (occurrence: US)
  Receive Date: 20210514
  Receipt Date: 20210514
  Transmission Date: 20210717
  Serious: Yes (Other)
  Sender: FDA-Public Use
  Company Number: US-MACLEODS PHARMACEUTICALS US LTD-MAC2021031112

PATIENT

DRUGS (2)
  1. CLOBETASOL 0.05 % W/W [Suspect]
     Active Substance: CLOBETASOL
     Indication: SEBORRHOEIC DERMATITIS
     Dosage: UNK, CREAM, SCHEDULED DOSING; FOR OVER A YEAR
     Route: 061
  2. CLOBETASOL 0.05 % W/W [Suspect]
     Active Substance: CLOBETASOL
     Dosage: UNK UNK, PRN, CREAM, AS NEEDED APPLICATION
     Route: 061

REACTIONS (5)
  - Fall [Recovered/Resolved]
  - Application site atrophy [Recovered/Resolved]
  - Secondary adrenocortical insufficiency [Recovered/Resolved]
  - Syncope [Recovered/Resolved]
  - Hypothalamic pituitary adrenal axis suppression [Recovered/Resolved]
